FAERS Safety Report 7428647-9 (Version None)
Quarter: 2011Q2

REPORT INFORMATION
  Report Type: 
  Country: None (occurrence: None)
  Receive Date: 20110421
  Receipt Date: 20090929
  Transmission Date: 20111010
  Serious: No
  Sender: FDA-Public Use
  Company Number: 2009BI031587

PATIENT
  Age: 31 Year
  Sex: Female

DRUGS (2)
  1. TYSABRI [Suspect]
     Indication: MULTIPLE SCLEROSIS
     Route: 042
     Dates: start: 20090801
  2. NUVIGIL [Concomitant]
     Indication: NARCOLEPSY

REACTIONS (8)
  - DIABETES MELLITUS [None]
  - BLOOD CHOLESTEROL INCREASED [None]
  - HYPOAESTHESIA [None]
  - LAZINESS [None]
  - SOMNOLENCE [None]
  - ASTHENIA [None]
  - DEPRESSED MOOD [None]
  - FATIGUE [None]
